FAERS Safety Report 7302471-X (Version None)
Quarter: 2011Q1

REPORT INFORMATION
  Report Type: 
  Country: None (occurrence: None)
  Receive Date: 20110218
  Receipt Date: 20110217
  Transmission Date: 20110831
  Serious: Yes (Other)
  Sender: FDA-Public Use
  Company Number: US-PFIZER INC-2010154648

PATIENT
  Sex: Female

DRUGS (12)
  1. CHANTIX [Suspect]
     Indication: SMOKING CESSATION THERAPY
     Dosage: UNK
     Dates: start: 20070101, end: 20071101
  2. CYMBALTA [Concomitant]
     Indication: DEPRESSION
     Dosage: UNK
     Dates: start: 20070701, end: 20070901
  3. ATIVAN [Concomitant]
     Indication: INSOMNIA
     Dosage: UNK
     Dates: start: 20050401
  4. AMOXICILLIN [Concomitant]
     Indication: SINUSITIS
     Dosage: UNK
     Dates: start: 20030401, end: 20100901
  5. SULFAMETHOXAZOLE AND TRIMETHOPRIM [Concomitant]
     Indication: URINARY TRACT INFECTION
  6. BUPROPION [Concomitant]
     Indication: DEPRESSION
     Dosage: UNK
     Dates: start: 19930101
  7. SULFAMETHOXAZOLE AND TRIMETHOPRIM [Concomitant]
     Indication: SINUSITIS
     Dosage: UNK
     Dates: start: 20070301, end: 20101101
  8. FLONASE [Concomitant]
     Indication: SINUSITIS
     Dosage: UNK
     Dates: start: 20031101
  9. AMOXICILLIN [Concomitant]
     Indication: URINARY TRACT INFECTION
  10. EFFEXOR [Concomitant]
     Indication: DEPRESSION
     Dosage: UNK
     Dates: start: 20040501
  11. MIRTAZAPINE [Concomitant]
     Indication: DEPRESSION
     Dosage: UNK
     Dates: start: 20070501, end: 20080401
  12. PROTONIX [Concomitant]
     Indication: GASTROOESOPHAGEAL REFLUX DISEASE
     Dosage: UNK
     Dates: start: 20070801, end: 20070901

REACTIONS (3)
  - SUICIDAL IDEATION [None]
  - DEPRESSION [None]
  - ANXIETY [None]
